FAERS Safety Report 16762433 (Version 2)
Quarter: 2019Q3

REPORT INFORMATION
  Report Type: Spontaneous
  Country: AU (occurrence: AU)
  Receive Date: 20190831
  Receipt Date: 20190913
  Transmission Date: 20191005
  Serious: Yes (Life-Threatening, Hospitalization, Other)
  Sender: FDA-Public Use
  Company Number: AU-ACCORD-153450

PATIENT
  Age: 70 Year
  Sex: Male

DRUGS (4)
  1. FLUOROURACIL. [Suspect]
     Active Substance: FLUOROURACIL
     Indication: NASOPHARYNGEAL CANCER STAGE III
  2. ROSUVASTATIN/ROSUVASTATIN CALCIUM [Concomitant]
     Indication: HYPERLIPIDAEMIA
  3. FENOFIBRATE. [Concomitant]
     Active Substance: FENOFIBRATE
     Indication: HYPERLIPIDAEMIA
  4. AMLODIPINE [Concomitant]
     Active Substance: AMLODIPINE BESYLATE

REACTIONS (4)
  - Acute myocardial infarction [Recovering/Resolving]
  - Off label use [Unknown]
  - Arteriospasm coronary [Unknown]
  - Acute coronary syndrome [Recovering/Resolving]
